FAERS Safety Report 14318640 (Version 2)
Quarter: 2025Q2

REPORT INFORMATION
  Report Type: Spontaneous
  Country: FR (occurrence: FR)
  Receive Date: 20171222
  Receipt Date: 20250426
  Transmission Date: 20250717
  Serious: Yes (Death, Congenital Anomaly, Other)
  Sender: AUROBINDO
  Company Number: FR-AUROBINDO-AUR-APL-2017-46784

PATIENT

DRUGS (1)
  1. PREDNISONE [Suspect]
     Active Substance: PREDNISONE
     Indication: Antinuclear antibody positive
     Route: 064

REACTIONS (2)
  - Congenital cytomegalovirus infection [Fatal]
  - Foetal exposure during pregnancy [Fatal]
